FAERS Safety Report 5764790-8 (Version None)
Quarter: 2008Q2

REPORT INFORMATION
  Report Type: 
  Country: None (occurrence: None)
  Receive Date: 20080605
  Receipt Date: 20080522
  Transmission Date: 20081010
  Serious: No
  Sender: FDA-Public Use
  Company Number: 233733J08USA

PATIENT
  Age: 58 Year
  Sex: Female

DRUGS (11)
  1. REBIF [Suspect]
     Indication: MULTIPLE SCLEROSIS
     Dosage: 44 MCG, 3 IN 1 WEEKS, SUBCUTANEOUS
     Route: 058
     Dates: start: 20041018
  2. ADVIL [Concomitant]
  3. TYLENOL (COTYLENOL) [Concomitant]
  4. ALEVE (CAPLET) [Concomitant]
  5. ZANAFLEX [Concomitant]
  6. DARVOCET [Concomitant]
  7. SECTRAL [Concomitant]
  8. SYNTHROID [Concomitant]
  9. COQ10 (UBIDECARENONE) [Concomitant]
  10. VITAMIN B12 [Concomitant]
  11. CORAL CAL + DAILY(ALL OTHER THERAPEUTIC PRODUCTS) [Concomitant]

REACTIONS (1)
  - NO ADVERSE EVENT [None]
